FAERS Safety Report 13716929 (Version 1)
Quarter: 2017Q3

REPORT INFORMATION
  Report Type: Spontaneous
  Country: BD (occurrence: BD)
  Receive Date: 20170705
  Receipt Date: 20170705
  Transmission Date: 20171127
  Serious: Yes (Death, Other)
  Sender: FDA-Public Use
  Company Number: BD-LUPIN PHARMACEUTICALS INC.-2017-03594

PATIENT
  Age: 27 Year
  Sex: Female

DRUGS (1)
  1. MISOPROSTOL. [Suspect]
     Active Substance: MISOPROSTOL
     Indication: LABOUR INDUCTION
     Dosage: UNK
     Route: 065

REACTIONS (3)
  - Shock [Fatal]
  - Uterine rupture [Fatal]
  - Broad ligament haematoma [Fatal]
